FAERS Safety Report 5909486-4 (Version None)
Quarter: 2008Q4

REPORT INFORMATION
  Report Type: 
  Country: None (occurrence: None)
  Receive Date: 20081002
  Receipt Date: 20080919
  Transmission Date: 20090506
  Serious: Yes (Other)
  Sender: FDA-Public Use
  Company Number: 107#03#2008-04786

PATIENT
  Age: 42 Year
  Sex: Female

DRUGS (4)
  1. TRIMIPRAMINE MALEATE [Suspect]
     Indication: DEPRESSION
     Dosage: 300 MG ORAL
     Route: 048
     Dates: start: 20080215, end: 20080610
  2. PULMICORT [Concomitant]
  3. AERODUR TURBOHALER (TERBUTALINE SULFATE) [Concomitant]
  4. ... [Concomitant]

REACTIONS (1)
  - PNEUMONIA [None]
